FAERS Safety Report 23917243 (Version 1)
Quarter: 2024Q2

REPORT INFORMATION
  Report Type: Spontaneous
  Country: US (occurrence: US)
  Receive Date: 20240529
  Receipt Date: 20240529
  Transmission Date: 20240716
  Serious: No
  Sender: FDA-Public Use
  Company Number: US-THERATECHNOLOGIES INC.-2024-THE-TES-000079

PATIENT

DRUGS (1)
  1. EGRIFTA SV [Suspect]
     Active Substance: TESAMORELIN ACETATE
     Indication: Lipodystrophy acquired
     Dosage: 1.4 MG,  0.35 ML OF THE RECONSTITUTED SOLUTION INJECTED, QD
     Route: 058
     Dates: start: 20240216

REACTIONS (8)
  - Product preparation issue [Recovered/Resolved]
  - Muscular weakness [Not Recovered/Not Resolved]
  - Burning sensation [Not Recovered/Not Resolved]
  - Feeling hot [Not Recovered/Not Resolved]
  - Pain [Not Recovered/Not Resolved]
  - Paraesthesia [Recovered/Resolved]
  - Hypoaesthesia [Not Recovered/Not Resolved]
  - Pain in extremity [Not Recovered/Not Resolved]

NARRATIVE: CASE EVENT DATE: 20240216
